FAERS Safety Report 16451871 (Version 1)
Quarter: 2019Q2

REPORT INFORMATION
  Report Type: Spontaneous
  Country: IL (occurrence: IL)
  Receive Date: 20190619
  Receipt Date: 20190619
  Transmission Date: 20190711
  Serious: Yes (Other)
  Sender: FDA-Public Use
  Company Number: IL-ROCHE-1105065

PATIENT
  Age: 57 Year
  Sex: Female

DRUGS (13)
  1. COPEGUS [Suspect]
     Active Substance: RIBAVIRIN
     Indication: CHRONIC HEPATITIS C
     Dosage: 0.05 MG DAILY DOSE FOR 1-3 DAYS
     Route: 065
  2. COPEGUS [Suspect]
     Active Substance: RIBAVIRIN
     Dosage: 50 MG DAILY DOSE FOR 25-27 DAYS
     Route: 065
  3. COPEGUS [Suspect]
     Active Substance: RIBAVIRIN
     Dosage: 0.1 MG DAILY DOSE FOR 4-6 DAYS
     Route: 065
  4. COPEGUS [Suspect]
     Active Substance: RIBAVIRIN
     Dosage: 5 MG DAILY DOSE FOR 16-18 DAYS
     Route: 065
  5. COPEGUS [Suspect]
     Active Substance: RIBAVIRIN
     Dosage: 200 MG DAILY DOSE ON DAY 31
     Route: 065
  6. COPEGUS [Suspect]
     Active Substance: RIBAVIRIN
     Dosage: 1000 MG DAILY DOSE
     Route: 065
  7. COPEGUS [Suspect]
     Active Substance: RIBAVIRIN
     Dosage: 0.2 MG DAILY DOSE FOR 7-9 DAYS
     Route: 065
  8. PEGASYS [Suspect]
     Active Substance: PEGINTERFERON ALFA-2A
     Indication: CHRONIC HEPATITIS C
     Route: 065
  9. COPEGUS [Suspect]
     Active Substance: RIBAVIRIN
     Dosage: 100 MG DAILY DOSE FOR 28-30 DAYS
     Route: 065
  10. COPEGUS [Suspect]
     Active Substance: RIBAVIRIN
     Dosage: 0.4 MG DAILY DOSE FOR 10-12 DAYS
     Route: 065
  11. COPEGUS [Suspect]
     Active Substance: RIBAVIRIN
     Dosage: 1 MG DAILY DOSE FOR 13-15 DAYS
     Route: 065
  12. COPEGUS [Suspect]
     Active Substance: RIBAVIRIN
     Dosage: 10 MG DAILY DOSE FOR 19-21 DAYS
     Route: 065
  13. COPEGUS [Suspect]
     Active Substance: RIBAVIRIN
     Dosage: 20 MG DAILY DOSE FOR 22-24 DAYS
     Route: 065

REACTIONS (4)
  - Type IV hypersensitivity reaction [Recovered/Resolved]
  - Febrile neutropenia [Unknown]
  - Urticaria [Recovered/Resolved]
  - Dyspnoea [Recovered/Resolved]
